FAERS Safety Report 6526812-6 (Version None)
Quarter: 2010Q1

REPORT INFORMATION
  Report Type: 
  Country: None (occurrence: None)
  Receive Date: 20100104
  Receipt Date: 20100104
  Transmission Date: 20100710
  Serious: Yes (Hospitalization)
  Sender: FDA-Public Use
  Company Number: None

PATIENT
  Age: 79 Year
  Sex: Female
  Weight: 56.5 kg

DRUGS (15)
  1. COUMADIN [Suspect]
     Indication: SPINAL LAMINECTOMY
     Dosage: 5 MG DAILY PO
     Route: 048
  2. COUMADIN [Suspect]
     Indication: THROMBOSIS PROPHYLAXIS
     Dosage: 5 MG DAILY PO
     Route: 048
  3. LOVENOX [Suspect]
     Indication: SPINAL FUSION SURGERY
     Dosage: 40 MG ON 16 + 17 OF DEC SQ
     Route: 058
  4. SYNTHROID [Concomitant]
  5. GLYCOLAX [Concomitant]
  6. POTASSIUM CHLORIDE [Concomitant]
  7. DETROL LA [Concomitant]
  8. NORVASC [Concomitant]
  9. DEMADEX [Concomitant]
  10. RYTHMOL [Concomitant]
  11. CALTRATE [Concomitant]
  12. M.V.I. [Concomitant]
  13. HCTZ/BARONOLACTINE [Concomitant]
  14. ZINC SULFATE [Concomitant]
  15. ACETAMINOPHEN AND HYDROCODONE BITARTRATE [Concomitant]

REACTIONS (6)
  - ANAEMIA [None]
  - ASTHENIA [None]
  - BARRETT'S OESOPHAGUS [None]
  - DECREASED APPETITE [None]
  - UPPER GASTROINTESTINAL HAEMORRHAGE [None]
  - VOMITING [None]
